FAERS Safety Report 19001093 (Version 10)
Quarter: 2021Q3

REPORT INFORMATION
  Report Type: Spontaneous
  Country: PL (occurrence: PL)
  Receive Date: 20210312
  Receipt Date: 20210903
  Transmission Date: 20211014
  Serious: Yes (Hospitalization, Other)
  Sender: FDA-Public Use
  Company Number: NVSC2021PL055284

PATIENT
  Age: 54 Year
  Sex: Female

DRUGS (14)
  1. NEBIVOLOL. [Interacting]
     Active Substance: NEBIVOLOL
     Indication: HYPERTENSION
     Dosage: 5 MG, QD
     Route: 065
  2. NEBIVOLOL. [Interacting]
     Active Substance: NEBIVOLOL
     Indication: BACK PAIN
  3. RISPERIDONE. [Interacting]
     Active Substance: RISPERIDONE
     Indication: SCHIZOPHRENIA
     Dosage: 4 MG, QD
     Route: 065
  4. METOPROLOL. [Suspect]
     Active Substance: METOPROLOL
     Indication: BRADYCARDIA
     Dosage: UNK
     Route: 065
  5. AMLODIPINE BESILATE [Interacting]
     Active Substance: AMLODIPINE BESYLATE
     Indication: HYPERTENSION
     Dosage: 10 MG, QD
     Route: 065
  6. GINKGO BILOBA EXTRACT [Interacting]
     Active Substance: GINKGO
     Indication: TOXICITY TO VARIOUS AGENTS
     Dosage: 240 MG, QD
     Route: 065
  7. METOPROLOL. [Interacting]
     Active Substance: METOPROLOL
     Indication: HYPERTENSION
  8. ROSUVASTATIN. [Interacting]
     Active Substance: ROSUVASTATIN
     Indication: PRODUCT USED FOR UNKNOWN INDICATION
     Dosage: UNK
     Route: 065
  9. CELECOXIB. [Interacting]
     Active Substance: CELECOXIB
     Indication: BACK PAIN
     Dosage: 200 MG, QD
     Route: 065
  10. NEBIVOLOL. [Interacting]
     Active Substance: NEBIVOLOL
     Indication: DYSLIPIDAEMIA
  11. PERINDOPRIL [Interacting]
     Active Substance: PERINDOPRIL
     Indication: LIP SWELLING
     Dosage: UNK
     Route: 065
  12. PERINDOPRIL [Interacting]
     Active Substance: PERINDOPRIL
     Indication: HYPERTENSION
  13. GINKGO BILOBA EXTRACT [Interacting]
     Active Substance: GINKGO
     Indication: SOMNOLENCE
  14. ATORVASTATIN CALCIUM. [Interacting]
     Active Substance: ATORVASTATIN CALCIUM
     Indication: DYSLIPIDAEMIA
     Dosage: 40 MG, QD
     Route: 065

REACTIONS (6)
  - Drug interaction [Unknown]
  - Bradycardia [Recovered/Resolved]
  - Swollen tongue [Recovered/Resolved]
  - Angioedema [Unknown]
  - Off label use [Unknown]
  - Lip oedema [Recovered/Resolved]
